FAERS Safety Report 4504509-1 (Version None)
Quarter: 2004Q4

REPORT INFORMATION
  Report Type: 
  Country: None (occurrence: None)
  Receive Date: 20041116
  Receipt Date: 20041013
  Transmission Date: 20050328
  Serious: Yes (Other)
  Sender: FDA-Public Use
  Company Number: 2004-DE-05600DE

PATIENT
  Age: 71 Year
  Sex: Female

DRUGS (5)
  1. MIRAPEX [Suspect]
     Indication: PARKINSON'S DISEASE
     Dosage: PO
     Route: 048
  2. AMANTADINE HYDROCHLLORIDE (AMANTADINE HYDROCHLORIDE) [Suspect]
     Dosage: IV
     Route: 042
  3. RANITIDINE [Concomitant]
  4. TASMAR (TOLCAPONE) [Concomitant]
  5. MADOPAR (MADOPAR) [Concomitant]

REACTIONS (5)
  - CEREBRAL HAEMORRHAGE [None]
  - DRUG LEVEL INCREASED [None]
  - DYSPNOEA [None]
  - LARYNGEAL OEDEMA [None]
  - OEDEMA PERIPHERAL [None]
